FAERS Safety Report 6686197-1 (Version None)
Quarter: 2010Q2

REPORT INFORMATION
  Report Type: 
  Country: None (occurrence: None)
  Receive Date: 20100415
  Receipt Date: 20100415
  Transmission Date: 20101027
  Serious: No
  Sender: FDA-Public Use
  Company Number: None

PATIENT
  Sex: Male
  Weight: 2.245 kg

DRUGS (1)
  1. GENTAK [Suspect]
     Indication: PROPHYLAXIS
     Dosage: 1 ONCE OPHTHALMIC
     Route: 047
     Dates: start: 20091115, end: 20091115

REACTIONS (2)
  - ERYTHEMA [None]
  - HAEMORRHAGE [None]
